FAERS Safety Report 20997940 (Version 1)
Quarter: 2022Q2

REPORT INFORMATION
  Report Type: Spontaneous
  Country: US (occurrence: US)
  Receive Date: 20220623
  Receipt Date: 20220623
  Transmission Date: 20220720
  Serious: Yes (Hospitalization)
  Sender: FDA-Public Use
  Company Number: US-Accord-267141

PATIENT
  Age: 36 Year
  Sex: Male

DRUGS (6)
  1. ARIPIPRAZOLE [Interacting]
     Active Substance: ARIPIPRAZOLE
     Indication: Schizoaffective disorder bipolar type
     Dosage: 25 MG/D, DECREASED TO 15 MG/D
  2. CLOZAPINE [Interacting]
     Active Substance: CLOZAPINE
     Indication: Schizoaffective disorder bipolar type
     Dosage: 250 MG/D, INCREASED TO 300 MG.DAY
  3. ISONIAZID [Interacting]
     Active Substance: ISONIAZID
     Indication: Latent tuberculosis
     Dosage: 300 MG/D
  4. PYRIDOXINE [Concomitant]
     Active Substance: PYRIDOXINE
     Indication: Latent tuberculosis
     Dosage: 50 MG/D
  5. LORAZEPAM [Concomitant]
     Active Substance: LORAZEPAM
     Indication: Schizoaffective disorder bipolar type
     Dosage: 4 MG/D, REDUCED TO 2 MG/D AND INCREASED TO 3 MG/D AND 4 MG/DAY
  6. VALPROIC ACID [Concomitant]
     Active Substance: VALPROIC ACID
     Indication: Schizoaffective disorder bipolar type
     Dosage: 1500 MG/D

REACTIONS (6)
  - Drug interaction [Unknown]
  - Agitation [Recovered/Resolved]
  - Psychotic disorder [Recovered/Resolved]
  - Tachycardia [Recovered/Resolved]
  - Decreased appetite [Recovered/Resolved]
  - Drug level increased [Unknown]
